FAERS Safety Report 4534790-4 (Version None)
Quarter: 2004Q4

REPORT INFORMATION
  Report Type: 
  Country: None (occurrence: None)
  Receive Date: 20041222
  Receipt Date: 20040310
  Transmission Date: 20050328
  Serious: Yes (Other)
  Sender: FDA-Public Use
  Company Number: US-BRISTOL-MYERS SQUIBB COMPANY-12529343

PATIENT
  Age: 45 Year
  Sex: Male
  Weight: 63 kg

DRUGS (4)
  1. PRAVACHOL [Suspect]
     Indication: BLOOD CHOLESTEROL INCREASED
     Route: 048
     Dates: start: 20031223
  2. ALTACE [Concomitant]
  3. NIASPAN [Concomitant]
  4. ASPIRIN BUFFERED [Concomitant]

REACTIONS (2)
  - DIARRHOEA [None]
  - EOSINOPHIL COUNT INCREASED [None]
